FAERS Safety Report 11766398 (Version 1)
Quarter: 2015Q4

REPORT INFORMATION
  Report Type: Spontaneous
  Country: GB (occurrence: GB)
  Receive Date: 20151123
  Receipt Date: 20151123
  Transmission Date: 20160304
  Serious: Yes (Disabling)
  Sender: FDA-Public Use
  Company Number: GB-ROCHE-1663945

PATIENT
  Age: 5 Year
  Sex: Female
  Weight: 17 kg

DRUGS (6)
  1. POTASSIUM CHLORIDE. [Concomitant]
     Active Substance: POTASSIUM CHLORIDE
     Indication: BUDD-CHIARI SYNDROME
     Dosage: ADJUSTED DOSE- ONGOING
     Route: 048
     Dates: start: 201111
  2. PEGASYS [Suspect]
     Active Substance: PEGINTERFERON ALFA-2A
     Indication: BUDD-CHIARI SYNDROME
     Route: 058
     Dates: start: 201112, end: 201408
  3. CHLOROTHIAZIDE. [Concomitant]
     Active Substance: CHLOROTHIAZIDE
     Indication: BUDD-CHIARI SYNDROME
     Dosage: ONGOING
     Route: 048
     Dates: start: 201201
  4. WARFARIN [Concomitant]
     Active Substance: WARFARIN
     Indication: BUDD-CHIARI SYNDROME
     Dosage: DOSE ADJUSTED- ONGOING
     Route: 048
     Dates: start: 201111
  5. SPIRONOLACTONE. [Concomitant]
     Active Substance: SPIRONOLACTONE
     Indication: BUDD-CHIARI SYNDROME
     Dosage: ONGOING
     Route: 048
     Dates: start: 201201
  6. HYDROXYUREA. [Concomitant]
     Active Substance: HYDROXYUREA
     Indication: JANUS KINASE 2 MUTATION
     Dosage: ONGOING
     Route: 048
     Dates: start: 201201

REACTIONS (1)
  - Nephrotic syndrome [Recovered/Resolved]

NARRATIVE: CASE EVENT DATE: 201407
